FAERS Safety Report 7631785-9 (Version None)
Quarter: 2011Q3

REPORT INFORMATION
  Report Type: 
  Country: None (occurrence: None)
  Receive Date: 20110725
  Receipt Date: 20110512
  Transmission Date: 20111222
  Serious: No
  Sender: FDA-Public Use
  Company Number: US-BRISTOL-MYERS SQUIBB COMPANY-15618085

PATIENT
  Age: 61 Year
  Sex: Female

DRUGS (2)
  1. LOVENOX [Suspect]
     Indication: PULMONARY EMBOLISM
     Route: 065
     Dates: start: 20110301
  2. COUMADIN [Suspect]
     Route: 065
     Dates: start: 20110301

REACTIONS (2)
  - FATIGUE [None]
  - DRUG DOSE OMISSION [None]
